FAERS Safety Report 16173093 (Version 2)
Quarter: 2019Q2

REPORT INFORMATION
  Report Type: Report from Study
  Country: IT (occurrence: IT)
  Receive Date: 20190409
  Receipt Date: 20190415
  Transmission Date: 20190711
  Serious: No
  Sender: FDA-Public Use
  Company Number: IT-ACCORD-118425

PATIENT
  Age: 50 Year
  Sex: Female

DRUGS (3)
  1. LORAZEPAM. [Suspect]
     Active Substance: LORAZEPAM
     Route: 048
     Dates: start: 20171005, end: 20171005
  2. MINIAS [Suspect]
     Active Substance: LORMETAZEPAM
     Route: 048
     Dates: start: 20171005, end: 20171005
  3. QUETIAPINE. [Suspect]
     Active Substance: QUETIAPINE
     Route: 048
     Dates: start: 20171005, end: 20171005

REACTIONS (1)
  - Psychomotor skills impaired [Recovering/Resolving]

NARRATIVE: CASE EVENT DATE: 20171005
